FAERS Safety Report 12178908 (Version 2)
Quarter: 2016Q1

REPORT INFORMATION
  Report Type: Spontaneous
  Country: FI (occurrence: FI)
  Receive Date: 20160315
  Receipt Date: 20160323
  Transmission Date: 20160526
  Serious: Yes (Hospitalization)
  Sender: FDA-Public Use
  Company Number: PHHY2016FI029696

PATIENT
  Age: 20 Year
  Sex: Male

DRUGS (2)
  1. SANDIMMUN NEORAL [Suspect]
     Active Substance: CYCLOSPORINE
     Indication: DERMATITIS ATOPIC
     Dosage: 150 MG, QD (50 MG PLUS 100 MG)
     Route: 048
     Dates: start: 20151007, end: 20160124
  2. SANDIMMUN NEORAL [Suspect]
     Active Substance: CYCLOSPORINE
     Indication: DERMATITIS EXFOLIATIVE

REACTIONS (6)
  - Leukocytosis [Recovered/Resolved]
  - Wrong technique in product usage process [Unknown]
  - Eosinophilia [Recovered/Resolved]
  - Duodenitis [Recovered/Resolved]
  - Abdominal pain [Recovered/Resolved]
  - C-reactive protein increased [Recovered/Resolved]

NARRATIVE: CASE EVENT DATE: 20151007
